FAERS Safety Report 12567369 (Version 1)
Quarter: 2016Q3

REPORT INFORMATION
  Report Type: Spontaneous
  Country: US (occurrence: US)
  Receive Date: 20160718
  Receipt Date: 20160718
  Transmission Date: 20161109
  Serious: No
  Sender: FDA-Public Use
  Company Number: US-ASTELLAS-2016US020408

PATIENT
  Sex: Female

DRUGS (3)
  1. OXYBUTIN [Suspect]
     Active Substance: OXYBUTYNIN
     Indication: PRODUCT USED FOR UNKNOWN INDICATION
     Dosage: UNK, UNKNOWN FREQ.
     Route: 065
  2. MYRBETRIQ [Suspect]
     Active Substance: MIRABEGRON
     Indication: MICTURITION URGENCY
     Route: 065
  3. MYRBETRIQ [Suspect]
     Active Substance: MIRABEGRON
     Dosage: 50 MG (25 X 2), ONCE DAILY
     Route: 065
     Dates: start: 201605

REACTIONS (3)
  - Dry eye [Unknown]
  - Drug ineffective [Unknown]
  - Oedema peripheral [Unknown]
